FAERS Safety Report 9028607 (Version 1)
Quarter: 2013Q1

REPORT INFORMATION
  Report Type: Report from Study
  Country: US (occurrence: US)
  Receive Date: 20130124
  Receipt Date: 20130124
  Transmission Date: 20140127
  Serious: Yes (Other)
  Sender: FDA-Public Use
  Company Number: US-ROCHE-1183179

PATIENT
  Sex: Female
  Weight: 66.28 kg

DRUGS (1)
  1. XELODA [Suspect]
     Indication: COLON CANCER
     Dosage: 2 TABLETS IN MORNING AND AT NIGHT
     Route: 048
     Dates: start: 20101105

REACTIONS (1)
  - Disease progression [Unknown]
